FAERS Safety Report 6040263-2 (Version None)
Quarter: 2009Q1

REPORT INFORMATION
  Report Type: 
  Country: None (occurrence: None)
  Receive Date: 20090116
  Receipt Date: 20080204
  Transmission Date: 20090719
  Serious: No
  Sender: FDA-Public Use
  Company Number: US-BRISTOL-MYERS SQUIBB COMPANY-14062095

PATIENT
  Age: 5 Decade
  Sex: Female
  Weight: 78 kg

DRUGS (4)
  1. ABILIFY [Suspect]
     Indication: BIPOLAR DISORDER
     Dosage: TAPERED BY 2.5MG PER MONTH;STOPPED 12 WEEKS AGO
     Route: 048
     Dates: start: 20051101
  2. PHENTERMINE [Suspect]
     Indication: WEIGHT DECREASED
  3. LAMICTAL [Concomitant]
  4. KLONOPIN [Concomitant]

REACTIONS (2)
  - BLEPHAROSPASM [None]
  - WEIGHT DECREASED [None]
